FAERS Safety Report 6494298-6 (Version None)
Quarter: 2009Q4

REPORT INFORMATION
  Report Type: 
  Country: None (occurrence: None)
  Receive Date: 20091214
  Receipt Date: 20090204
  Transmission Date: 20100525
  Serious: No
  Sender: FDA-Public Use
  Company Number: US-BRISTOL-MYERS SQUIBB COMPANY-14494314

PATIENT
  Age: 80 Year
  Sex: Female

DRUGS (8)
  1. ABILIFY [Suspect]
     Indication: PSYCHOTIC DISORDER
     Dosage: 2DOSES OF ABILIFY
     Dates: start: 20081201
  2. ABILIFY [Suspect]
     Indication: DEPRESSION
     Dosage: 2DOSES OF ABILIFY
     Dates: start: 20081201
  3. CYMBALTA [Concomitant]
  4. POTASSIUM CHLORIDE [Concomitant]
  5. LASIX [Concomitant]
  6. METHADONE [Concomitant]
  7. TOPROL-XL [Concomitant]
  8. OMNARIS [Concomitant]

REACTIONS (1)
  - RASH [None]
